FAERS Safety Report 19816330 (Version 1)
Quarter: 2021Q3

REPORT INFORMATION
  Report Type: Report from Study
  Country: KR (occurrence: KR)
  Receive Date: 20210910
  Receipt Date: 20210910
  Transmission Date: 20211014
  Serious: Yes (Other)
  Sender: FDA-Public Use
  Company Number: KR-AMGEN-KORNI2021138096

PATIENT
  Sex: Female
  Weight: 59.2 kg

DRUGS (9)
  1. CARFILZOMIB [Suspect]
     Active Substance: CARFILZOMIB
     Indication: PLASMA CELL MYELOMA
     Dosage: 43 MILLIGRAM
     Route: 065
     Dates: start: 20190418
  2. SUPRAX [Concomitant]
     Active Substance: CEFIXIME
     Dosage: 1, UNK
     Dates: start: 20190107, end: 20190811
  3. LENALIDOMIDE [Concomitant]
     Active Substance: LENALIDOMIDE
     Dosage: 15 MILLIGRAM
     Dates: start: 20190613, end: 20190705
  4. DEXAMETHASONE. [Concomitant]
     Active Substance: DEXAMETHASONE
     Dosage: 20 MILLIGRAM
     Dates: start: 20190613, end: 20190705
  5. MEGESTROL [Concomitant]
     Active Substance: MEGESTROL
     Dosage: 1, UNK (PACK)
     Dates: start: 20190718, end: 20190725
  6. SEPTRIN [Concomitant]
     Active Substance: SULFAMETHOXAZOLE\TRIMETHOPRIM
     Dosage: 1, UNK
     Dates: start: 20190516, end: 20190813
  7. APROVEL [Concomitant]
     Active Substance: IRBESARTAN
     Dosage: 0.5, UNK
     Dates: start: 20190430, end: 20190916
  8. ATOZET [Concomitant]
     Active Substance: ATORVASTATIN CALCIUM\EZETIMIBE
     Dosage: 1, UNK
     Dates: start: 20190430
  9. ASPIRIN. [Concomitant]
     Active Substance: ASPIRIN
     Dosage: 1, UNK
     Dates: start: 20190418, end: 20190801

REACTIONS (1)
  - Myelosuppression [Not Recovered/Not Resolved]

NARRATIVE: CASE EVENT DATE: 20190801
